FAERS Safety Report 9526158 (Version 2)
Quarter: 2013Q3

REPORT INFORMATION
  Report Type: Report from Study
  Country: DE (occurrence: DE)
  Receive Date: 20130916
  Receipt Date: 20130926
  Transmission Date: 20140515
  Serious: Yes (Hospitalization, Other)
  Sender: FDA-Public Use
  Company Number: DE-TEVA-430546GER

PATIENT
  Age: 69 Year
  Sex: Female
  Weight: 60 kg

DRUGS (1)
  1. RATIOGRASTIM [Suspect]
     Indication: NEUTROPENIA
     Dosage: 48000000 IU (INTERNATIONAL UNIT) DAILY;
     Route: 058
     Dates: start: 20130802, end: 20130804

REACTIONS (2)
  - Neutropenia [Recovered/Resolved]
  - Pneumothorax [Unknown]
